FAERS Safety Report 15203019 (Version 10)
Quarter: 2020Q4

REPORT INFORMATION
  Report Type: Report from Study
  Country: US (occurrence: US)
  Receive Date: 20180726
  Receipt Date: 20201117
  Transmission Date: 20210113
  Serious: Yes (Hospitalization)
  Sender: FDA-Public Use
  Company Number: US-TAKEDA-2018MPI009754

PATIENT
  Age: 75 Year
  Sex: Female
  Weight: 52.15 kg

DRUGS (7)
  1. ACYCLOVIR                          /00587301/ [Concomitant]
     Active Substance: ACYCLOVIR
     Dosage: UNK
     Route: 065
  2. IXAZOMIB [Suspect]
     Active Substance: IXAZOMIB
     Indication: PLASMA CELL MYELOMA IN REMISSION
     Dosage: 2.3 MILLIGRAM
     Route: 048
     Dates: start: 20180703, end: 20180802
  3. SYNTHROID [Concomitant]
     Active Substance: LEVOTHYROXINE SODIUM
     Indication: PRODUCT USED FOR UNKNOWN INDICATION
     Dosage: UNK
     Route: 065
  4. IXAZOMIB [Suspect]
     Active Substance: IXAZOMIB
     Dosage: 2.3 MILLIGRAM
     Route: 048
     Dates: start: 201801
  5. REVLIMID [Concomitant]
     Active Substance: LENALIDOMIDE
     Indication: PRODUCT USED FOR UNKNOWN INDICATION
     Dosage: UNK
     Route: 065
  6. IXAZOMIB [Suspect]
     Active Substance: IXAZOMIB
     Dosage: 3 MILLIGRAM
     Route: 048
     Dates: start: 20180820, end: 201810
  7. BORTEZOMIB. [Suspect]
     Active Substance: BORTEZOMIB
     Indication: PLASMA CELL MYELOMA
     Dosage: UNK, Q2WEEKS
     Route: 065
     Dates: start: 201609, end: 201806

REACTIONS (12)
  - Cognitive disorder [Unknown]
  - Memory impairment [Unknown]
  - Ageusia [Unknown]
  - Off label use [Unknown]
  - Blood potassium decreased [Unknown]
  - Vomiting [Unknown]
  - Upper limb fracture [Recovered/Resolved]
  - Gait disturbance [Unknown]
  - Bronchitis [Unknown]
  - Fall [Recovered/Resolved]
  - Hordeolum [Unknown]
  - Muscle spasms [Unknown]

NARRATIVE: CASE EVENT DATE: 20180714
